FAERS Safety Report 7545952-6 (Version None)
Quarter: 2011Q2

REPORT INFORMATION
  Report Type: 
  Country: None (occurrence: None)
  Receive Date: 20110614
  Receipt Date: 20110601
  Transmission Date: 20111010
  Serious: Yes (Hospitalization, Other)
  Sender: FDA-Public Use
  Company Number: PHFR2011IE03227

PATIENT
  Sex: Male

DRUGS (3)
  1. CLOZAPINE [Suspect]
     Dosage: 150 MG, QD
     Route: 048
     Dates: start: 20100913, end: 20110412
  2. LAMOTRIGINE [Concomitant]
     Indication: DEPRESSED MOOD
     Dosage: 100 MG/DAY
     Route: 048
     Dates: start: 20110208
  3. AMISULPRIDE [Suspect]
     Indication: PSYCHOTIC DISORDER
     Dosage: 200 MG/DAY
     Route: 048
     Dates: start: 20110330

REACTIONS (5)
  - WHITE BLOOD CELL COUNT INCREASED [None]
  - NEUTROPENIA [None]
  - THERMAL BURN [None]
  - PYREXIA [None]
  - NEUTROPHIL COUNT INCREASED [None]
